FAERS Safety Report 12655381 (Version 3)
Quarter: 2016Q4

REPORT INFORMATION
  Report Type: Other
  Country: DE (occurrence: DE)
  Receive Date: 20160816
  Receipt Date: 20161104
  Transmission Date: 20170207
  Serious: Yes (Other)
  Sender: FDA-Public Use
  Company Number: DE-CELLTRION INC.-2016DE004616

PATIENT

DRUGS (5)
  1. REMSIMA [Suspect]
     Active Substance: INFLIXIMAB
     Indication: COLITIS ULCERATIVE
     Dosage: 400 MG, SINGLE
     Route: 042
     Dates: start: 20160126, end: 20160126
  2. AZATHIOPRINE. [Concomitant]
     Active Substance: AZATHIOPRINE
     Dosage: UNK
     Dates: start: 20160212
  3. SALOFALK /00747601/ (MESALAZINE) ENEMA [Concomitant]
     Dosage: UNK
     Dates: start: 20151106
  4. REMSIMA [Suspect]
     Active Substance: INFLIXIMAB
     Dosage: 400 MG, SINGLE
     Route: 042
     Dates: start: 20160211, end: 20160211
  5. SALOFALK /00747601/ (MESALAZINE) SUPPOSITORY [Concomitant]
     Dosage: UNK
     Dates: start: 20151106

REACTIONS (2)
  - Folliculitis [Recovering/Resolving]
  - Pustular psoriasis [Not Recovered/Not Resolved]

NARRATIVE: CASE EVENT DATE: 20160224
